FAERS Safety Report 4729667-5 (Version None)
Quarter: 2005Q3

REPORT INFORMATION
  Report Type: 
  Country: None (occurrence: None)
  Receive Date: 20050728
  Receipt Date: 20050718
  Transmission Date: 20060218
  Serious: Yes (Hospitalization)
  Sender: FDA-Public Use
  Company Number: 2005103548

PATIENT
  Age: 75 Year
  Sex: Male
  Weight: 74.8435 kg

DRUGS (8)
  1. CELEBREX [Suspect]
     Indication: OSTEOARTHRITIS
     Dosage: 200 MG (200 MG, 1 IN 1 D) ORAL
     Route: 048
     Dates: start: 20050630, end: 20050717
  2. OXYCONTIN [Concomitant]
  3. VERAPAMIL [Concomitant]
  4. VITAMINS [Concomitant]
  5. ASCORBIC ACID [Concomitant]
  6. VITAMIN E [Concomitant]
  7. MILK OF MAGNESIA TAB [Concomitant]
  8. ONE-A-DAY (ASCORBIC ACID, CYANOCOALAMIN, ERGOCALCIFEROL, NICOTANAMIDE, [Concomitant]

REACTIONS (4)
  - CONSTIPATION [None]
  - EXTRASYSTOLES [None]
  - FAECES PALE [None]
  - HEART RATE DECREASED [None]
